FAERS Safety Report 8903292 (Version 2)
Quarter: 2012Q4

REPORT INFORMATION
  Report Type: 
  Country: IN (occurrence: IN)
  Receive Date: 20121112
  Receipt Date: 20121120
  Transmission Date: 20130627
  Serious: Yes (Other)
  Sender: FDA-Public Use
  Company Number: IN-RANBAXY-2012RR-61793

PATIENT
  Sex: Male

DRUGS (12)
  1. CIPROFLOXACIN [Suspect]
     Indication: MENINGITIS TUBERCULOUS
     Dosage: UNK
     Route: 065
  2. PYRAZINAMIDE [Suspect]
     Indication: MENINGITIS TUBERCULOUS
     Dosage: UNK
     Route: 065
  3. PYRAZINAMIDE [Suspect]
     Dosage: UNK
     Route: 065
  4. ISONIAZID [Suspect]
     Indication: MENINGITIS TUBERCULOUS
     Dosage: UNK
     Route: 065
  5. ISONIAZID [Suspect]
     Dosage: UNK
     Route: 065
  6. ISONIAZID [Suspect]
     Dosage: UNK
     Route: 065
  7. STREPTOMYCIN [Suspect]
     Indication: MENINGITIS TUBERCULOUS
     Dosage: UNK
     Route: 065
  8. RIFAMPICIN [Suspect]
     Indication: MENINGITIS TUBERCULOUS
     Dosage: UNK
     Route: 065
  9. RIFAMPICIN [Suspect]
     Dosage: UNK
     Route: 065
  10. RIFAMPICIN [Suspect]
     Dosage: UNK
     Route: 065
  11. ETHAMBUTOL [Suspect]
     Indication: MENINGITIS TUBERCULOUS
     Dosage: UNK
     Route: 065
  12. ETHAMBUTOL [Suspect]
     Dosage: UNK
     Route: 065

REACTIONS (1)
  - Tuberculoma of central nervous system [Recovering/Resolving]
